FAERS Safety Report 9255093 (Version 1)
Quarter: 2013Q1

REPORT INFORMATION
  Report Type: Spontaneous
  Country: US (occurrence: None)
  Receive Date: 20121212
  Receipt Date: 20121212
  Transmission Date: 20140127
  Serious: No
  Sender: FDA-Public Use
  Company Number: 1211USA002452

PATIENT
  Age: 54 Year
  Sex: Male

DRUGS (8)
  1. PEGINTRON [Suspect]
     Indication: HEPATITIS C
     Dates: start: 20120913
  2. VICTRELIS [Suspect]
  3. RIBASPHERE [Suspect]
  4. ALPRAZOLAM [Concomitant]
  5. OLANZAPINE [Concomitant]
  6. PROPANOLOL HYDROCHLORIDE [Concomitant]
  7. PHROCHLORPERAZINE [Concomitant]
  8. NAPROXEN [Concomitant]

REACTIONS (3)
  - Contusion [None]
  - Product quality issue [None]
  - Inappropriate schedule of drug administration [None]
